FAERS Safety Report 5814862-4 (Version None)
Quarter: 2008Q3

REPORT INFORMATION
  Report Type: 
  Country: None (occurrence: None)
  Receive Date: 20080718
  Receipt Date: 20080710
  Transmission Date: 20090109
  Serious: Yes (Other)
  Sender: FDA-Public Use
  Company Number: JP-AMGEN-US295052

PATIENT
  Sex: Female

DRUGS (6)
  1. ENBREL [Suspect]
     Indication: RHEUMATOID ARTHRITIS
     Route: 058
  2. SARPOGRELATE HYDROCHLORIDE [Suspect]
     Indication: HEADACHE
  3. ACETYLSALICYLIC ACID SRT [Suspect]
     Indication: HEADACHE
  4. ETHYL ICOSAPENTATE [Suspect]
     Indication: HEADACHE
  5. RHEUMATREX [Suspect]
     Indication: RHEUMATOID ARTHRITIS
     Route: 048
     Dates: end: 20080710
  6. FOLIAMIN [Concomitant]
     Route: 048

REACTIONS (1)
  - BONE MARROW FAILURE [None]
